FAERS Safety Report 5711094-5 (Version None)
Quarter: 2008Q2

REPORT INFORMATION
  Report Type: 
  Country: None (occurrence: None)
  Receive Date: 20080417
  Receipt Date: 20080417
  Transmission Date: 20081010
  Serious: Yes (Hospitalization, Other)
  Sender: FDA-Public Use
  Company Number: None

PATIENT

DRUGS (1)
  1. ANAGRELIDE HCL [Suspect]

REACTIONS (1)
  - CARDIAC FAILURE CONGESTIVE [None]
